FAERS Safety Report 19778196 (Version 1)
Quarter: 2021Q3

REPORT INFORMATION
  Report Type: Spontaneous
  Country: US (occurrence: US)
  Receive Date: 20210831
  Receipt Date: 20210831
  Transmission Date: 20211014
  Serious: Yes (Life-Threatening)
  Sender: FDA-Public Use
  Company Number: None

PATIENT
  Age: 72 Year
  Sex: Female
  Weight: 59.87 kg

DRUGS (5)
  1. MULTIPLE VITAMINS [Concomitant]
     Active Substance: VITAMINS
  2. VITAMIN D3 [Concomitant]
     Active Substance: CHOLECALCIFEROL
  3. FUROSEMIDE. [Concomitant]
     Active Substance: FUROSEMIDE
  4. SYNTHROID [Concomitant]
     Active Substance: LEVOTHYROXINE SODIUM
  5. DOTAREM [Suspect]
     Active Substance: GADOTERATE MEGLUMINE
     Indication: SCAN WITH CONTRAST
     Dates: start: 20210225, end: 20210225

REACTIONS (7)
  - Pain of skin [None]
  - Headache [None]
  - Blindness [None]
  - Tendon rupture [None]
  - Deafness [None]
  - Skin tightness [None]
  - Peripheral swelling [None]

NARRATIVE: CASE EVENT DATE: 20210225
